FAERS Safety Report 8308864-6 (Version None)
Quarter: 2012Q2

REPORT INFORMATION
  Report Type: 
  Country: None (occurrence: None)
  Receive Date: 20120424
  Receipt Date: 20120418
  Transmission Date: 20120825
  Serious: No
  Sender: FDA-Public Use
  Company Number: US-PFIZER INC-2012098223

PATIENT
  Age: 72 Year
  Sex: Female

DRUGS (1)
  1. ATORVASTATIN CALCIUM [Suspect]
     Dosage: 2 WEEKS

REACTIONS (3)
  - BLOOD CHOLESTEROL INCREASED [None]
  - LIPIDS INCREASED [None]
  - DRUG INEFFECTIVE [None]
